FAERS Safety Report 5567533-6 (Version None)
Quarter: 2007Q4

REPORT INFORMATION
  Report Type: 
  Country: None (occurrence: None)
  Receive Date: 20071214
  Receipt Date: 20071129
  Transmission Date: 20080405
  Serious: Yes (Disabling)
  Sender: FDA-Public Use
  Company Number: MK-6034496

PATIENT
  Age: 32 Year
  Sex: Female
  Weight: 75 kg

DRUGS (4)
  1. CITALOPRAM (CITRALOPRAM) [Suspect]
     Indication: DEPRESSION
     Dosage: 40 MG; ORAL
     Route: 048
     Dates: start: 20050501, end: 20070128
  2. CLINDAMYCIN HCL [Concomitant]
  3. ERYTHROMYCIN [Concomitant]
  4. SERETIDE /01420901/ [Concomitant]

REACTIONS (2)
  - VISUAL DISTURBANCE [None]
  - VISUAL FIELD DEFECT [None]
